FAERS Safety Report 13080955 (Version 1)
Quarter: 2017Q1

REPORT INFORMATION
  Report Type: Spontaneous
  Country: US (occurrence: US)
  Receive Date: 20170103
  Receipt Date: 20170103
  Transmission Date: 20170428
  Serious: No
  Sender: FDA-Public Use
  Company Number: US-BAUSCH-BL-2016-024862

PATIENT
  Sex: Male

DRUGS (4)
  1. XENAZINE [Suspect]
     Active Substance: TETRABENAZINE
     Route: 048
     Dates: start: 201610
  2. XENAZINE [Suspect]
     Active Substance: TETRABENAZINE
     Dosage: ONE-HALF TABLET IN THE MORNING AND 1 TABLET AT BEDTIME
     Route: 048
     Dates: start: 201610, end: 201610
  3. XENAZINE [Suspect]
     Active Substance: TETRABENAZINE
     Indication: TARDIVE DYSKINESIA
     Dosage: ONE HALF TABLET AT BEDTIME
     Route: 048
     Dates: start: 20160921, end: 2016
  4. XENAZINE [Suspect]
     Active Substance: TETRABENAZINE
     Dosage: ONE-HALF TABLET TWICE DAILY
     Route: 048
     Dates: start: 2016, end: 2016

REACTIONS (2)
  - Off label use [Unknown]
  - Drug dose omission [Unknown]
